FAERS Safety Report 20690417 (Version 1)
Quarter: 2022Q2

REPORT INFORMATION
  Report Type: Spontaneous
  Country: PT (occurrence: None)
  Receive Date: 20220408
  Receipt Date: 20220408
  Transmission Date: 20220721
  Serious: Yes (Hospitalization)
  Sender: FDA-Public Use
  Company Number: 2022A134783

PATIENT
  Age: 21 Year
  Sex: Female

DRUGS (2)
  1. BUDESONIDE [Suspect]
     Active Substance: BUDESONIDE
     Route: 065
  2. TRIAMCINOLONE ACETONIDE [Suspect]
     Active Substance: TRIAMCINOLONE ACETONIDE
     Indication: Drug hypersensitivity
     Route: 045
     Dates: start: 20220316

REACTIONS (3)
  - Hypersensitivity [Unknown]
  - Generalised oedema [Unknown]
  - Pain [Unknown]
